FAERS Safety Report 11746810 (Version 1)
Quarter: 2015Q4

REPORT INFORMATION
  Report Type: Spontaneous
  Country: US (occurrence: US)
  Receive Date: 20151117
  Receipt Date: 20151117
  Transmission Date: 20160304
  Serious: Yes (Hospitalization, Other)
  Sender: FDA-Public Use
  Company Number: US-ELI_LILLY_AND_COMPANY-US201511003682

PATIENT
  Age: 35 Year
  Sex: Female

DRUGS (2)
  1. PROZAC [Suspect]
     Active Substance: FLUOXETINE HYDROCHLORIDE
     Indication: DEPRESSION
     Dosage: UNK
     Route: 065
     Dates: start: 199609
  2. NATALINS RX [Concomitant]
     Active Substance: FOLIC ACID\IRON\MINERALS\VITAMINS
     Indication: PRODUCT USED FOR UNKNOWN INDICATION
     Dosage: UNK, QD
     Route: 065

REACTIONS (5)
  - Premature separation of placenta [Unknown]
  - Blood pressure increased [Unknown]
  - Retroplacental haematoma [Unknown]
  - Maternal exposure during pregnancy [Unknown]
  - Haemorrhage in pregnancy [Unknown]

NARRATIVE: CASE EVENT DATE: 19980313
